FAERS Safety Report 18205264 (Version 1)
Quarter: 2020Q3

REPORT INFORMATION
  Report Type: Spontaneous
  Country: US (occurrence: US)
  Receive Date: 20200827
  Receipt Date: 20200827
  Transmission Date: 20201103
  Serious: Yes (Other)
  Sender: FDA-Public Use
  Company Number: NVSC2020US237107

PATIENT

DRUGS (2)
  1. HYDROXYCHLOROQUINE SULFATE TABLETS USP [Suspect]
     Active Substance: HYDROXYCHLOROQUINE SULFATE
     Indication: CORONAVIRUS INFECTION
     Dosage: 600 MG, BID
     Route: 065
  2. PROPOFOL. [Concomitant]
     Active Substance: PROPOFOL
     Indication: ELECTROCARDIOGRAM QT PROLONGED
     Dosage: CONTINOUS
     Route: 041

REACTIONS (2)
  - Ventricular tachycardia [Unknown]
  - Product use in unapproved indication [Unknown]
